FAERS Safety Report 7821769-X (Version None)
Quarter: 2011Q4

REPORT INFORMATION
  Report Type: 
  Country: None (occurrence: None)
  Receive Date: 20111018
  Receipt Date: 20110520
  Transmission Date: 20120403
  Serious: No
  Sender: FDA-Public Use
  Company Number: US-ASTRAZENECA-2011SE31582

PATIENT
  Age: 82 Year
  Sex: Female

DRUGS (8)
  1. SYMBICORT [Suspect]
     Indication: ASTHMA
     Dosage: 2 PUFFS BID, DOSE UNKNOWN
     Route: 055
  2. CLARITIN [Concomitant]
     Indication: MULTIPLE ALLERGIES
  3. GABAPENTIN [Concomitant]
     Indication: ARTHRITIS
  4. DIGOXIN [Concomitant]
  5. LEXAPRO [Concomitant]
  6. CLONAZEPAM [Concomitant]
  7. METOPROLOL TARTRATE [Concomitant]
     Indication: HYPERTENSION
     Route: 048
  8. LIPITOR [Concomitant]
     Indication: BLOOD CHOLESTEROL INCREASED

REACTIONS (3)
  - MIDDLE INSOMNIA [None]
  - DRY MOUTH [None]
  - DYSPNOEA [None]
